FAERS Safety Report 10884676 (Version 6)
Quarter: 2015Q2

REPORT INFORMATION
  Report Type: Spontaneous
  Country: US (occurrence: US)
  Receive Date: 20150304
  Receipt Date: 20150520
  Transmission Date: 20150821
  Serious: Yes (Hospitalization, Other)
  Sender: FDA-Public Use
  Company Number: US-NOVOPROD-440409

PATIENT
  Age: 68 Year
  Sex: Male
  Weight: 130.11 kg

DRUGS (9)
  1. NOVOLOG [Suspect]
     Active Substance: INSULIN ASPART
     Dosage: 15 U PLUS SLIDING SCALE, WITH MEALS
     Route: 058
  2. NOVOLIN N [Suspect]
     Active Substance: INSULIN HUMAN
     Dosage: 50 U, BID
     Route: 058
  3. HYDROCHLOROTHIAZIDE WITH TRIAMTERENE [Suspect]
     Active Substance: HYDROCHLOROTHIAZIDE\TRIAMTERENE
     Indication: HYPERTENSION
     Dosage: 50MG/75MG, 0.5 OTHER QD
     Route: 048
     Dates: start: 20140331, end: 20150302
  4. SPIRONOLACTONE. [Suspect]
     Active Substance: SPIRONOLACTONE
     Indication: HYPERTENSION
     Dosage: 25 MG, QD
     Route: 048
     Dates: start: 20140121
  5. LISINOPRIL. [Suspect]
     Active Substance: LISINOPRIL
     Indication: HYPERTENSION
     Dosage: 40 MG, QD
     Route: 048
     Dates: start: 2007
  6. NOVOLOG [Suspect]
     Active Substance: INSULIN ASPART
     Indication: TYPE 2 DIABETES MELLITUS
     Dosage: UNK
     Route: 058
     Dates: start: 20140930
  7. NOVOLOG [Suspect]
     Active Substance: INSULIN ASPART
     Dosage: 10 U PLUS SLIDING SCALE, WITH MEALS
     Route: 058
  8. AMLODIPINE [Suspect]
     Active Substance: AMLODIPINE BESYLATE
     Indication: HYPERTENSION
     Dosage: 10 MG, QD
     Route: 048
     Dates: start: 20140619
  9. NOVOLIN N [Suspect]
     Active Substance: INSULIN HUMAN
     Indication: TYPE 2 DIABETES MELLITUS
     Dosage: 84 U, QD
     Route: 058
     Dates: start: 20140828

REACTIONS (5)
  - Partial seizures [Recovered/Resolved]
  - Hyperosmolar hyperglycaemic state [Recovered/Resolved]
  - Treatment noncompliance [Unknown]
  - Hypertension [Recovered/Resolved]
  - Drug dose omission [Unknown]

NARRATIVE: CASE EVENT DATE: 20141219
